FAERS Safety Report 20364226 (Version 1)
Quarter: 2022Q1

REPORT INFORMATION
  Report Type: Spontaneous
  Country: US (occurrence: None)
  Receive Date: 20220121
  Receipt Date: 20220121
  Transmission Date: 20220423
  Serious: Yes (Hospitalization)
  Sender: FDA-Public Use
  Company Number: None

PATIENT
  Sex: Female
  Weight: 56.4 kg

DRUGS (1)
  1. CARBOPLATIN [Suspect]
     Active Substance: CARBOPLATIN

REACTIONS (13)
  - Suicide attempt [None]
  - Overdose [None]
  - Treatment noncompliance [None]
  - Anxiety [None]
  - Thinking abnormal [None]
  - Depression [None]
  - Insomnia [None]
  - Weight decreased [None]
  - Feeling abnormal [None]
  - Decreased appetite [None]
  - Weight increased [None]
  - Hallucination, auditory [None]
  - Hallucination, visual [None]

NARRATIVE: CASE EVENT DATE: 20210122
